FAERS Safety Report 9397910 (Version 3)
Quarter: 2013Q3

REPORT INFORMATION
  Report Type: Spontaneous
  Country: AU (occurrence: None)
  Receive Date: 20130709
  Receipt Date: 20130903
  Transmission Date: 20140515
  Serious: Yes (Death)
  Sender: FDA-Public Use
  Company Number: AUR-APL-2013-05729

PATIENT
  Sex: Female

DRUGS (19)
  1. RAMIPRIL [Suspect]
     Indication: PRODUCT USED FOR UNKNOWN INDICATION
     Route: 048
  2. ATROVENT [Suspect]
     Indication: PRODUCT USED FOR UNKNOWN INDICATION
  3. FAMVIR [Suspect]
     Indication: PRODUCT USED FOR UNKNOWN INDICATION
  4. FLUCONAZOLE [Suspect]
     Indication: PRODUCT USED FOR UNKNOWN INDICATION
     Route: 048
  5. FUNGILIN [Suspect]
     Indication: PRODUCT USED FOR UNKNOWN INDICATION
  6. KENALOG [Suspect]
     Indication: PRODUCT USED FOR UNKNOWN INDICATION
  7. MAXOLON [Suspect]
     Indication: PRODUCT USED FOR UNKNOWN INDICATION
  8. METOPROLOL [Suspect]
     Indication: PRODUCT USED FOR UNKNOWN INDICATION
     Route: 048
  9. NIZATIDINE [Suspect]
     Indication: PRODUCT USED FOR UNKNOWN INDICATION
  10. NEXIUM (ESOMEPRAZOLE MAGNESIUM) [Suspect]
     Indication: PRODUCT USED FOR UNKNOWN INDICATION
     Route: 048
  11. PARIET [Suspect]
     Indication: PRODUCT USED FOR UNKNOWN INDICATION
  12. PANAMAX [Suspect]
     Indication: PRODUCT USED FOR UNKNOWN INDICATION
  13. PANADEINE FORTE [Suspect]
     Indication: PRODUCT USED FOR UNKNOWN INDICATION
  14. PRADAXA [Suspect]
     Indication: CEREBROVASCULAR ACCIDENT
     Dosage: 1 IN 1 D
     Dates: start: 20110804
  15. SERETIDE (SERETIDE) [Suspect]
     Indication: PRODUCT USED FOR UNKNOWN INDICATION
  16. SPIRIVA [Suspect]
     Indication: PRODUCT USED FOR UNKNOWN INDICATION
  17. SPIRONOLACTONE [Suspect]
     Indication: PRODUCT USED FOR UNKNOWN INDICATION
  18. TEMAZEPAM [Suspect]
     Indication: PRODUCT USED FOR UNKNOWN INDICATION
  19. VENTOLINE [Suspect]
     Indication: PRODUCT USED FOR UNKNOWN INDICATION

REACTIONS (1)
  - Pancreatic carcinoma [None]
